FAERS Safety Report 5830881-6 (Version None)
Quarter: 2008Q3

REPORT INFORMATION
  Report Type: 
  Country: None (occurrence: None)
  Receive Date: 20080801
  Receipt Date: 20080206
  Transmission Date: 20090109
  Serious: Yes (Other)
  Sender: FDA-Public Use
  Company Number: US-BRISTOL-MYERS SQUIBB COMPANY-14040158

PATIENT
  Age: 29 Year
  Sex: Male
  Weight: 52 kg

DRUGS (4)
  1. COUMADIN [Suspect]
     Indication: DEEP VEIN THROMBOSIS
     Dosage: DOSE INCREASED TO 9MG, THEN TO 10MG
     Route: 048
     Dates: start: 20071213
  2. LOVENOX [Suspect]
     Indication: DEEP VEIN THROMBOSIS
  3. CHANTIX [Concomitant]
  4. CYMBALTA [Concomitant]

REACTIONS (2)
  - ACTIVATED PARTIAL THROMBOPLASTIN TIME PROLONGED [None]
  - INTERNATIONAL NORMALISED RATIO INCREASED [None]
